FAERS Safety Report 20206405 (Version 2)
Quarter: 2022Q1

REPORT INFORMATION
  Report Type: Spontaneous
  Country: US (occurrence: US)
  Receive Date: 20211220
  Receipt Date: 20220210
  Transmission Date: 20220423
  Serious: Yes (Other)
  Sender: FDA-Public Use
  Company Number: US-BAYER-2021A267587

PATIENT
  Age: 65 Year
  Sex: Male
  Weight: 179 kg

DRUGS (5)
  1. CLARITIN [Suspect]
     Active Substance: LORATADINE
     Indication: Seasonal allergy
     Dosage: 10 MG
     Route: 048
     Dates: start: 2014
  2. PRAVASTATIN SODIUM [Suspect]
     Active Substance: PRAVASTATIN SODIUM
     Indication: Hyperlipidaemia
     Dosage: 40 MG
     Route: 048
     Dates: start: 20210225
  3. PRAVASTATIN SODIUM [Suspect]
     Active Substance: PRAVASTATIN SODIUM
     Indication: Hyperlipidaemia
     Dosage: UNK
     Dates: start: 20211129
  4. VITAMINS NOS [Concomitant]
     Active Substance: VITAMINS
     Dosage: 1 DF
     Route: 048
     Dates: start: 2010
  5. HEPARIN [Concomitant]
     Active Substance: HEPARIN SODIUM

REACTIONS (1)
  - Prostate cancer stage II [Recovered/Resolved]

NARRATIVE: CASE EVENT DATE: 20210215
